FAERS Safety Report 8783481 (Version 1)
Quarter: 2012Q4

REPORT INFORMATION
  Report Type: 
  Country: BR (occurrence: BR)
  Receive Date: 20120913
  Receipt Date: 20120913
  Transmission Date: 20130627
  Serious: Yes (Other)
  Sender: FDA-Public Use
  Company Number: PHHY2012BR079398

PATIENT
  Age: 42 Year
  Sex: Male

DRUGS (2)
  1. PREDNISONE [Suspect]
     Indication: RENAL TRANSPLANT
  2. AZATHIOPRINE [Suspect]
     Indication: RENAL TRANSPLANT

REACTIONS (3)
  - Spindle cell sarcoma [Unknown]
  - Actinic elastosis [Unknown]
  - Actinic cheilitis [Unknown]
